FAERS Safety Report 8585646-1 (Version None)
Quarter: 2012Q3

REPORT INFORMATION
  Report Type: 
  Country: None (occurrence: None)
  Receive Date: 20120810
  Receipt Date: 20120731
  Transmission Date: 20120928
  Serious: Yes (Hospitalization, Other)
  Sender: FDA-Public Use
  Company Number: US-009507513-1111USA00734

PATIENT

DRUGS (5)
  1. FOSAMAX [Suspect]
     Dosage: 70 MG QW
     Route: 048
     Dates: start: 19971222, end: 20071226
  2. OS-CAL (CALCIUM CARBONATE) [Concomitant]
     Dosage: UNK
     Dates: start: 19930101
  3. BONIVA [Suspect]
     Dosage: UNK UNK, QM3
     Dates: start: 20081201, end: 20091101
  4. FOSAMAX [Suspect]
     Indication: OSTEOPOROSIS
     Dosage: 10 MG, UNK
     Route: 048
     Dates: start: 19971222, end: 20071226
  5. FOSAMAX [Suspect]
     Dosage: 70 MG, QW
     Route: 048
     Dates: start: 20080318, end: 20090201

REACTIONS (30)
  - LUNG NEOPLASM [None]
  - LEUKOCYTOSIS [None]
  - POLYARTHRITIS [None]
  - ANXIETY [None]
  - DYSPNOEA [None]
  - PERICARDIAL EFFUSION [None]
  - FEMUR FRACTURE [None]
  - TONSILLAR DISORDER [None]
  - HYPERLIPIDAEMIA [None]
  - DEPRESSION [None]
  - RIB FRACTURE [None]
  - BACK PAIN [None]
  - BENIGN BREAST NEOPLASM [None]
  - HAEMOGLOBIN DECREASED [None]
  - HAEMORRHAGIC ANAEMIA [None]
  - CARDIAC MURMUR [None]
  - HYPERTENSION [None]
  - ECCHYMOSIS [None]
  - AORTIC ARTERIOSCLEROSIS [None]
  - FRACTURE NONUNION [None]
  - DENTAL CARIES [None]
  - HEAD INJURY [None]
  - LYMPHADENOPATHY MEDIASTINAL [None]
  - HIATUS HERNIA [None]
  - CARDIOMEGALY [None]
  - LOW TURNOVER OSTEOPATHY [None]
  - COLON ADENOMA [None]
  - GASTROOESOPHAGEAL REFLUX DISEASE [None]
  - ARTHROPATHY [None]
  - HYPOKALAEMIA [None]
